FAERS Safety Report 7487578-9 (Version None)
Quarter: 2011Q1

REPORT INFORMATION
  Report Type: 
  Country: None (occurrence: None)
  Receive Date: 20110309
  Receipt Date: 20110105
  Transmission Date: 20110831
  Serious: Yes (Other)
  Sender: FDA-Public Use
  Company Number: 2011SP000748

PATIENT
  Sex: Female

DRUGS (2)
  1. TOPAMAX [Concomitant]
  2. SAPHRIS [Suspect]
     Dosage: 10 MG; BID; SL
     Route: 060

REACTIONS (1)
  - TARDIVE DYSKINESIA [None]
